FAERS Safety Report 21974266 (Version 2)
Quarter: 2023Q1

REPORT INFORMATION
  Report Type: Spontaneous
  Country: US (occurrence: US)
  Receive Date: 20230209
  Receipt Date: 20230224
  Transmission Date: 20230418
  Serious: Yes (Hospitalization, Other)
  Sender: FDA-Public Use
  Company Number: US-NOVOPROD-1021127

PATIENT
  Age: 57 Year
  Sex: Female

DRUGS (1)
  1. OZEMPIC [Suspect]
     Active Substance: SEMAGLUTIDE
     Indication: Type 2 diabetes mellitus
     Dosage: 0.25 MG, QW
     Route: 058
     Dates: start: 20210624, end: 20210702

REACTIONS (14)
  - Sepsis [Recovered/Resolved]
  - Head injury [Recovered/Resolved]
  - Amnesia [Not Recovered/Not Resolved]
  - Arthritis [Unknown]
  - Neck mass [Unknown]
  - Weight decreased [Not Recovered/Not Resolved]
  - Cardiac disorder [Unknown]
  - Alopecia [Recovered/Resolved]
  - Exophthalmos [Unknown]
  - Fall [Unknown]
  - Loss of consciousness [Unknown]
  - Pain [Unknown]
  - Feeling cold [Unknown]
  - Nausea [Unknown]

NARRATIVE: CASE EVENT DATE: 20210701
